FAERS Safety Report 5801661-2 (Version None)
Quarter: 2008Q3

REPORT INFORMATION
  Report Type: 
  Country: None (occurrence: None)
  Receive Date: 20080707
  Receipt Date: 20080703
  Transmission Date: 20090109
  Serious: Yes (Life-Threatening, Hospitalization, Other)
  Sender: FDA-Public Use
  Company Number: B0506909A

PATIENT
  Age: 24 Year
  Sex: Female

DRUGS (100)
  1. IMURAN [Suspect]
     Indication: IMMUNOSUPPRESSANT DRUG THERAPY
     Dosage: 100MG PER DAY
     Route: 048
     Dates: start: 20030613, end: 20031005
  2. IMURAN [Suspect]
     Dosage: 50MG PER DAY
     Route: 048
     Dates: start: 20031219
  3. PROGRAF [Suspect]
     Indication: IMMUNOSUPPRESSANT DRUG THERAPY
     Route: 042
     Dates: start: 20030613
  4. FENTANEST [Suspect]
     Indication: DRUG USE FOR UNKNOWN INDICATION
     Route: 042
     Dates: start: 20030613, end: 20030615
  5. FUNGIZONE [Suspect]
     Indication: DRUG USE FOR UNKNOWN INDICATION
     Route: 055
     Dates: start: 20030613, end: 20031116
  6. DIPRIVAN [Suspect]
     Indication: DRUG USE FOR UNKNOWN INDICATION
     Route: 042
     Dates: start: 20030615, end: 20030630
  7. ROPIVACAINE [Suspect]
     Indication: DRUG USE FOR UNKNOWN INDICATION
     Route: 042
     Dates: start: 20030616, end: 20030625
  8. VANCOMYCIN [Suspect]
     Indication: DRUG USE FOR UNKNOWN INDICATION
     Route: 042
     Dates: start: 20030617, end: 20030709
  9. MYSLEE [Suspect]
     Indication: DRUG USE FOR UNKNOWN INDICATION
     Route: 048
     Dates: start: 20030707
  10. GANCICLOVIR [Suspect]
     Indication: DRUG USE FOR UNKNOWN INDICATION
     Dates: start: 20030806
  11. FAMOTIDINE [Suspect]
     Indication: DRUG USE FOR UNKNOWN INDICATION
     Route: 048
     Dates: start: 20030902
  12. MEROPEN [Suspect]
     Indication: DRUG USE FOR UNKNOWN INDICATION
     Route: 042
     Dates: start: 20030622
  13. FUNGUARD [Suspect]
     Indication: DRUG USE FOR UNKNOWN INDICATION
     Route: 042
     Dates: start: 20031006
  14. ITRIZOLE [Suspect]
     Indication: DRUG USE FOR UNKNOWN INDICATION
     Route: 048
     Dates: start: 20031104
  15. CARBENIN [Suspect]
     Indication: DRUG USE FOR UNKNOWN INDICATION
     Dates: start: 20030613, end: 20030621
  16. TARGOCID [Suspect]
     Indication: DRUG USE FOR UNKNOWN INDICATION
     Route: 042
     Dates: start: 20030613
  17. PASIL [Suspect]
     Indication: DRUG USE FOR UNKNOWN INDICATION
     Route: 042
     Dates: start: 20030613
  18. DIFLUCAN [Suspect]
     Indication: DRUG USE FOR UNKNOWN INDICATION
     Route: 042
     Dates: start: 20030613, end: 20030716
  19. PIPERACILLIN AND TAZOBACTAM [Suspect]
     Indication: DRUG USE FOR UNKNOWN INDICATION
     Route: 042
     Dates: start: 20030623
  20. BAKTAR [Suspect]
     Indication: DRUG USE FOR UNKNOWN INDICATION
     Route: 048
     Dates: start: 20030630
  21. ZOVIRAX [Suspect]
     Indication: DRUG USE FOR UNKNOWN INDICATION
     Route: 048
     Dates: start: 20030918, end: 20030918
  22. VENOGLOBULIN [Suspect]
     Indication: DRUG USE FOR UNKNOWN INDICATION
     Route: 042
     Dates: start: 20030614, end: 20030617
  23. VENOGLOBULIN [Suspect]
     Route: 042
     Dates: start: 20030622, end: 20030624
  24. VENOGLOBULIN [Suspect]
     Route: 042
     Dates: start: 20030930, end: 20031002
  25. VENOGLOBULIN [Suspect]
     Route: 042
     Dates: start: 20030924, end: 20030924
  26. VENOGLOBULIN [Suspect]
     Route: 042
     Dates: start: 20031007, end: 20031007
  27. VENOGLOBULIN [Suspect]
     Route: 042
     Dates: start: 20031014, end: 20031014
  28. VENOGLOBULIN [Suspect]
     Route: 042
     Dates: start: 20031021, end: 20031021
  29. METHYLPREDNISOLONE [Concomitant]
     Indication: IMMUNOSUPPRESSANT DRUG THERAPY
     Route: 042
     Dates: start: 20030613, end: 20030804
  30. PREDNISOLONE [Concomitant]
     Indication: IMMUNOSUPPRESSANT DRUG THERAPY
     Route: 048
     Dates: start: 20030805
  31. HICALIQ [Concomitant]
     Indication: DRUG USE FOR UNKNOWN INDICATION
     Route: 042
     Dates: start: 20030704, end: 20030804
  32. POTASSIUM CHLORIDE [Concomitant]
     Indication: DRUG USE FOR UNKNOWN INDICATION
     Route: 042
     Dates: start: 20030706, end: 20030804
  33. LEPETAN [Concomitant]
     Indication: DRUG USE FOR UNKNOWN INDICATION
     Route: 054
     Dates: start: 20030710, end: 20030713
  34. PENTOBARBITAL CAP [Concomitant]
     Indication: DRUG USE FOR UNKNOWN INDICATION
     Route: 048
     Dates: start: 20030711, end: 20030714
  35. RISPERDAL [Concomitant]
     Indication: DRUG USE FOR UNKNOWN INDICATION
     Route: 048
     Dates: start: 20030714, end: 20030714
  36. HIRNAMIN [Concomitant]
     Indication: DRUG USE FOR UNKNOWN INDICATION
     Route: 048
     Dates: start: 20030715, end: 20030814
  37. NITRAZEPAM [Concomitant]
     Indication: DRUG USE FOR UNKNOWN INDICATION
     Route: 048
     Dates: start: 20030715, end: 20030728
  38. MAINTATE [Concomitant]
     Indication: DRUG USE FOR UNKNOWN INDICATION
     Route: 048
     Dates: start: 20030725, end: 20031028
  39. MAINTATE [Concomitant]
     Route: 048
     Dates: start: 20031112
  40. LENDORMIN [Concomitant]
     Indication: DRUG USE FOR UNKNOWN INDICATION
     Route: 048
     Dates: start: 20030729, end: 20030820
  41. EURODIN [Concomitant]
     Indication: DRUG USE FOR UNKNOWN INDICATION
     Route: 048
     Dates: start: 20030729, end: 20030812
  42. EURODIN [Concomitant]
     Route: 048
     Dates: start: 20030822, end: 20040116
  43. EURODIN [Concomitant]
     Route: 048
     Dates: start: 20040316
  44. SOLITA-T [Concomitant]
     Indication: DRUG USE FOR UNKNOWN INDICATION
     Route: 042
     Dates: start: 20030805, end: 20030807
  45. MAGNESIUM OXIDE [Concomitant]
     Indication: DRUG USE FOR UNKNOWN INDICATION
     Route: 048
     Dates: start: 20030815, end: 20030910
  46. HALCION [Concomitant]
     Indication: DRUG USE FOR UNKNOWN INDICATION
     Route: 048
     Dates: start: 20030902, end: 20030925
  47. DEPAS [Concomitant]
     Indication: DRUG USE FOR UNKNOWN INDICATION
     Route: 048
     Dates: start: 20030925, end: 20040109
  48. AMOBAN [Concomitant]
     Indication: DRUG USE FOR UNKNOWN INDICATION
     Route: 048
     Dates: start: 20030926, end: 20030926
  49. FOSCAVIR [Concomitant]
     Indication: DRUG USE FOR UNKNOWN INDICATION
     Route: 042
     Dates: start: 20031002, end: 20031117
  50. CALCICOL [Concomitant]
     Indication: DRUG USE FOR UNKNOWN INDICATION
     Route: 042
     Dates: start: 20031003, end: 20031003
  51. CALCICOL [Concomitant]
     Route: 042
     Dates: start: 20031006, end: 20031028
  52. MEROPEN [Concomitant]
     Route: 042
     Dates: start: 20030622, end: 20030622
  53. MEROPEN [Concomitant]
     Route: 042
     Dates: start: 20031004, end: 20031014
  54. PRIMPERAN TAB [Concomitant]
     Indication: DRUG USE FOR UNKNOWN INDICATION
     Route: 042
     Dates: start: 20031004, end: 20031021
  55. FUNGUARD [Concomitant]
     Route: 042
     Dates: start: 20031006, end: 20031103
  56. BIOFERMIN R [Concomitant]
     Indication: DRUG USE FOR UNKNOWN INDICATION
     Route: 048
     Dates: start: 20031006
  57. FUROSEMIDE [Concomitant]
     Indication: DRUG USE FOR UNKNOWN INDICATION
     Route: 048
     Dates: start: 20031009, end: 20031103
  58. ALDACTONE [Concomitant]
     Indication: DRUG USE FOR UNKNOWN INDICATION
     Route: 048
     Dates: start: 20031009, end: 20031103
  59. ITRIZOLE [Concomitant]
     Route: 048
     Dates: start: 20031104
  60. KLARICID [Concomitant]
     Indication: DRUG USE FOR UNKNOWN INDICATION
     Route: 048
     Dates: start: 20031110, end: 20040217
  61. KLARICID [Concomitant]
     Route: 048
     Dates: start: 20040301
  62. KLARICID [Concomitant]
     Route: 048
     Dates: start: 20040430
  63. ASPARA-CA [Concomitant]
     Indication: DRUG USE FOR UNKNOWN INDICATION
     Route: 048
     Dates: start: 20040213
  64. JUVELA N [Concomitant]
     Indication: DRUG USE FOR UNKNOWN INDICATION
     Route: 048
     Dates: start: 20040405, end: 20040420
  65. TARGOCID [Concomitant]
     Route: 042
     Dates: start: 20030613, end: 20030616
  66. PASIL [Concomitant]
     Route: 042
     Dates: start: 20030613, end: 20030616
  67. DIFLUCAN [Concomitant]
     Route: 042
     Dates: start: 20030613, end: 20030716
  68. GAMIMUNE N 5% [Concomitant]
     Indication: DRUG USE FOR UNKNOWN INDICATION
     Route: 042
     Dates: start: 20030613, end: 20030613
  69. GAMIMUNE N 5% [Concomitant]
     Route: 042
     Dates: start: 20030626, end: 20030626
  70. GAMIMUNE N 5% [Concomitant]
     Route: 042
     Dates: start: 20030703, end: 20030703
  71. ELASPOL [Concomitant]
     Indication: DRUG USE FOR UNKNOWN INDICATION
     Route: 042
     Dates: start: 20030613, end: 20030626
  72. INOVAN [Concomitant]
     Indication: DRUG USE FOR UNKNOWN INDICATION
     Route: 042
     Dates: start: 20030613, end: 20030621
  73. INOVAN [Concomitant]
     Route: 042
     Dates: start: 20030626, end: 20030805
  74. CORETEC [Concomitant]
     Indication: DRUG USE FOR UNKNOWN INDICATION
     Route: 042
     Dates: start: 20030613, end: 20030620
  75. TAGAMET [Concomitant]
     Indication: DRUG USE FOR UNKNOWN INDICATION
     Route: 042
     Dates: start: 20030613, end: 20030807
  76. NITROGLYCERIN [Concomitant]
     Indication: DRUG USE FOR UNKNOWN INDICATION
     Route: 042
     Dates: start: 20030613, end: 20030613
  77. MIDAZOLAM HCL [Concomitant]
     Indication: DRUG USE FOR UNKNOWN INDICATION
     Route: 042
     Dates: start: 20030613, end: 20030615
  78. VECURONIUM BROMIDE [Concomitant]
     Indication: DRUG USE FOR UNKNOWN INDICATION
     Route: 042
     Dates: start: 20030613, end: 20030617
  79. SOLITA-T [Concomitant]
     Route: 042
     Dates: start: 20030613, end: 20030614
  80. ALPROSTADIL [Concomitant]
     Indication: DRUG USE FOR UNKNOWN INDICATION
     Route: 042
     Dates: start: 20030613, end: 20030626
  81. BISOLVON [Concomitant]
     Indication: DRUG USE FOR UNKNOWN INDICATION
     Route: 055
     Dates: start: 20030613, end: 20030929
  82. ALOTEC [Concomitant]
     Indication: DRUG USE FOR UNKNOWN INDICATION
     Route: 055
     Dates: start: 20030613, end: 20030929
  83. ALBUMIN (HUMAN) [Concomitant]
     Indication: DRUG USE FOR UNKNOWN INDICATION
     Route: 042
     Dates: start: 20030614, end: 20030617
  84. ALBUMIN (HUMAN) [Concomitant]
     Route: 042
     Dates: start: 20030623, end: 20030624
  85. ALBUMIN (HUMAN) [Concomitant]
     Route: 042
     Dates: start: 20030629, end: 20030630
  86. PHYSIO 35 [Concomitant]
     Indication: DRUG USE FOR UNKNOWN INDICATION
     Route: 042
     Dates: start: 20030615, end: 20030616
  87. AMINO ACID INJ [Concomitant]
     Indication: DRUG USE FOR UNKNOWN INDICATION
     Route: 042
     Dates: start: 20030617, end: 20030619
  88. MINERALIN [Concomitant]
     Indication: DRUG USE FOR UNKNOWN INDICATION
     Route: 042
     Dates: start: 20030617, end: 20030804
  89. HEMATINIC [Concomitant]
     Indication: DRUG USE FOR UNKNOWN INDICATION
     Route: 042
     Dates: start: 20030617, end: 20030807
  90. FOY [Concomitant]
     Indication: DRUG USE FOR UNKNOWN INDICATION
     Route: 042
     Dates: start: 20030619, end: 20030707
  91. HABEKACIN [Concomitant]
     Indication: DRUG USE FOR UNKNOWN INDICATION
     Route: 042
     Dates: start: 20030619, end: 20030709
  92. AMINO ACID INJ [Concomitant]
     Route: 042
     Dates: start: 20030620, end: 20030627
  93. NEO-MINOPHAGEN-C [Concomitant]
     Indication: DRUG USE FOR UNKNOWN INDICATION
     Route: 042
     Dates: start: 20030622, end: 20030807
  94. ALBUMIN (HUMAN) [Concomitant]
     Indication: DRUG USE FOR UNKNOWN INDICATION
     Route: 042
     Dates: start: 20030625, end: 20030625
  95. ULCERLMIN [Concomitant]
     Indication: DRUG USE FOR UNKNOWN INDICATION
     Route: 048
     Dates: start: 20030625, end: 20030902
  96. HICALIQ [Concomitant]
     Route: 042
     Dates: start: 20030628, end: 20030704
  97. LANDSEN [Concomitant]
     Indication: DRUG USE FOR UNKNOWN INDICATION
     Route: 048
     Dates: start: 20030630, end: 20030814
  98. SUPRECUR [Concomitant]
     Indication: LYMPHOMA
     Route: 045
     Dates: start: 20030701, end: 20030712
  99. KIDMIN [Concomitant]
     Indication: DRUG USE FOR UNKNOWN INDICATION
     Route: 042
     Dates: start: 20030704, end: 20030804
  100. MAGNESIUM SULFATE [Concomitant]
     Indication: DRUG USE FOR UNKNOWN INDICATION
     Route: 042
     Dates: start: 20031008, end: 20031031

REACTIONS (11)
  - ALTERED STATE OF CONSCIOUSNESS [None]
  - CONVULSION [None]
  - CYST [None]
  - CYTOMEGALOVIRUS VIRAEMIA [None]
  - HYPERGLYCAEMIA [None]
  - PLEURAL EFFUSION [None]
  - PNEUMONIA STAPHYLOCOCCAL [None]
  - PNEUMOTHORAX [None]
  - RENAL IMPAIRMENT [None]
  - RETROPERITONEAL LYMPHADENOPATHY [None]
  - WHITE BLOOD CELL COUNT DECREASED [None]
